FAERS Safety Report 7187211-X (Version None)
Quarter: 2010Q4

REPORT INFORMATION
  Report Type: 
  Country: None (occurrence: None)
  Receive Date: 20101222
  Receipt Date: 20101217
  Transmission Date: 20110411
  Serious: Yes (Hospitalization)
  Sender: FDA-Public Use
  Company Number: ES-ABBOTT-10P-144-0692301-00

PATIENT
  Age: 83 Year
  Sex: Male

DRUGS (5)
  1. PANTOMICINA INJECTION [Suspect]
     Indication: GASTROINTESTINAL HYPOMOTILITY
     Dosage: INTRAVESICAL 3 TIMES DAILY
     Dates: start: 20101116, end: 20101117
  2. ATROVENT [Concomitant]
     Indication: PRODUCT USED FOR UNKNOWN INDICATION
     Route: 055
     Dates: start: 20101023
  3. EDEMOX [Concomitant]
     Indication: PRODUCT USED FOR UNKNOWN INDICATION
     Route: 048
     Dates: start: 20101103
  4. SEGURIL [Concomitant]
     Indication: PRODUCT USED FOR UNKNOWN INDICATION
     Route: 042
     Dates: start: 20101026, end: 20101115
  5. VENTOLIN [Concomitant]
     Indication: INFECTION
     Route: 055
     Dates: start: 20101110

REACTIONS (2)
  - DISEASE PROGRESSION [None]
  - HEPATITIS CHOLESTATIC [None]
